FAERS Safety Report 24902453 (Version 2)
Quarter: 2025Q1

REPORT INFORMATION
  Report Type: Spontaneous
  Country: CN (occurrence: CN)
  Receive Date: 20250130
  Receipt Date: 20250310
  Transmission Date: 20250409
  Serious: Yes (Hospitalization, Other)
  Sender: NOVO NORDISK
  Company Number: CN-NOVOPROD-1355436

PATIENT
  Age: 78 Year
  Sex: Female
  Weight: 75 kg

DRUGS (2)
  1. NOVOLIN R [Suspect]
     Active Substance: INSULIN HUMAN
     Indication: Type 2 diabetes mellitus
     Dates: start: 1983
  2. NOVOLIN R [Suspect]
     Active Substance: INSULIN HUMAN

REACTIONS (2)
  - Colon cancer [Not Recovered/Not Resolved]
  - Metastases to lung [Unknown]

NARRATIVE: CASE EVENT DATE: 20170101
